FAERS Safety Report 4711472-7 (Version None)
Quarter: 2005Q3

REPORT INFORMATION
  Report Type: 
  Country: None (occurrence: None)
  Receive Date: 20050711
  Receipt Date: 20050623
  Transmission Date: 20060218
  Serious: Yes (Hospitalization)
  Sender: FDA-Public Use
  Company Number: PHEH2005US04727

PATIENT
  Age: 26 Year
  Sex: Male
  Weight: 99.7913 kg

DRUGS (4)
  1. VISUDYNE [Suspect]
     Dates: start: 20050418, end: 20050418
  2. PREDNISONE [Suspect]
     Dates: start: 20050419
  3. NOVOLOG [Concomitant]
  4. LANTUS [Concomitant]

REACTIONS (7)
  - ACCIDENTAL EXPOSURE [None]
  - HYPERGLYCAEMIA [None]
  - KETOACIDOSIS [None]
  - NAUSEA [None]
  - PHARMACEUTICAL PRODUCT COMPLAINT [None]
  - URTICARIA [None]
  - VOMITING [None]
